FAERS Safety Report 23295177 (Version 1)
Quarter: 2023Q4

REPORT INFORMATION
  Report Type: Spontaneous
  Country: BE (occurrence: BE)
  Receive Date: 20231213
  Receipt Date: 20231213
  Transmission Date: 20240110
  Serious: Yes (Hospitalization, Other)
  Sender: FDA-Public Use
  Company Number: BE-RICONPHARMA, LLC-2023RIC000045

PATIENT
  Age: 70 Year
  Sex: Male

DRUGS (3)
  1. CARBAMAZEPINE [Suspect]
     Active Substance: CARBAMAZEPINE
     Indication: Epilepsy
     Dosage: UNK
     Route: 065
  2. TICAGRELOR [Suspect]
     Active Substance: TICAGRELOR
     Indication: Antiplatelet therapy
     Dosage: 180 MILLIGRAM, BID
     Route: 065
  3. ASPIRIN [Concomitant]
     Active Substance: ASPIRIN
     Indication: Antiplatelet therapy
     Dosage: 100 MILLIGRAM, QD
     Route: 065

REACTIONS (4)
  - Vascular stent thrombosis [Recovered/Resolved]
  - Acute coronary syndrome [Recovered/Resolved]
  - Cardiogenic shock [Recovered/Resolved]
  - Drug interaction [Recovered/Resolved]
